FAERS Safety Report 13493797 (Version 3)
Quarter: 2017Q2

REPORT INFORMATION
  Report Type: Spontaneous
  Country: US (occurrence: US)
  Receive Date: 20170427
  Receipt Date: 20170615
  Transmission Date: 20170830
  Serious: Yes (Disabling, Other)
  Sender: FDA-Public Use
  Company Number: US-REGENERON PHARMACEUTICALS, INC.-2017-14817

PATIENT

DRUGS (21)
  1. FISH OIL W/VITAMIN E NOS [Concomitant]
     Indication: PRODUCT USED FOR UNKNOWN INDICATION
     Route: 048
  2. ECOTRIN [Concomitant]
     Active Substance: ASPIRIN
     Indication: PRODUCT USED FOR UNKNOWN INDICATION
     Dosage: 81 MG, UNK
  3. ATIVAN [Concomitant]
     Active Substance: LORAZEPAM
     Indication: PRODUCT USED FOR UNKNOWN INDICATION
     Dosage: 0.5 MG, UNK
  4. CALCIUM ACETATE. [Concomitant]
     Active Substance: CALCIUM ACETATE
     Indication: PRODUCT USED FOR UNKNOWN INDICATION
     Dosage: 667 MG, UNK
     Route: 048
  5. VITAMIN D3 [Concomitant]
     Active Substance: CHOLECALCIFEROL
     Indication: PRODUCT USED FOR UNKNOWN INDICATION
     Dosage: 1000 UT, UNK
     Route: 048
  6. LUTEIN OMEGA 3 [Concomitant]
     Indication: PRODUCT USED FOR UNKNOWN INDICATION
     Dosage: 2.5/250 MG, UNK
     Route: 048
  7. ZEAXANTHIN [Concomitant]
     Active Substance: ZEAXANTHIN
     Indication: PRODUCT USED FOR UNKNOWN INDICATION
     Dosage: 0.5 MG, UNK
     Route: 048
  8. EYLEA [Suspect]
     Active Substance: AFLIBERCEPT
     Dosage: 5 MG, OS, EVERY 4 WEEKS (28 DAYS), FORTH DOSE
     Route: 031
     Dates: start: 20170308, end: 20170308
  9. EYLEA [Suspect]
     Active Substance: AFLIBERCEPT
     Dosage: 5 MG, EVERY 4 WEEKS (28 DAYS), OS, FIFTH DOSE
     Route: 031
     Dates: start: 20170509, end: 20170509
  10. EYLEA [Suspect]
     Active Substance: AFLIBERCEPT
     Indication: MACULAR OEDEMA
     Dosage: 5 MG, EVERY 4 WEEKS (28 DAYS), OS
     Route: 031
     Dates: start: 20170104, end: 20170104
  11. EYLEA [Suspect]
     Active Substance: AFLIBERCEPT
     Indication: CYSTOID MACULAR OEDEMA
     Dosage: 5 MG, EVERY 4 WEEKS (28 DAYS), OS, THIRD DOSE
     Route: 031
     Dates: start: 20170201, end: 20170201
  12. LUCENTIS [Suspect]
     Active Substance: RANIBIZUMAB
     Indication: PRODUCT USED FOR UNKNOWN INDICATION
     Dosage: FIFTH DOSE, LEFT EYE
     Dates: start: 20161109, end: 20161109
  13. SYNTHROID [Concomitant]
     Active Substance: LEVOTHYROXINE SODIUM
     Dosage: 75 MG MILLIGRAM(S), 4XWEEK
  14. BENICAR [Concomitant]
     Active Substance: OLMESARTAN MEDOXOMIL
     Indication: PRODUCT USED FOR UNKNOWN INDICATION
     Dosage: 10 MG, BID
     Route: 048
  15. EYLEA [Suspect]
     Active Substance: AFLIBERCEPT
     Dosage: 5 MG, OS, EVERY 4 WEEKS (28 DAYS)
     Route: 031
     Dates: start: 20170405, end: 20170405
  16. OXYCODONE HYDROCHLORIDE. [Concomitant]
     Active Substance: OXYCODONE HYDROCHLORIDE
     Indication: PRODUCT USED FOR UNKNOWN INDICATION
     Dosage: 10 MG, UNK
     Route: 048
  17. SYNTHROID [Concomitant]
     Active Substance: LEVOTHYROXINE SODIUM
     Indication: PRODUCT USED FOR UNKNOWN INDICATION
     Dosage: 50 MG MILLIGRAM(S), 3XWEEK
     Route: 048
  18. FOLIC ACID. [Concomitant]
     Active Substance: FOLIC ACID
     Indication: PRODUCT USED FOR UNKNOWN INDICATION
     Dosage: 800 ?G, UNK
     Route: 048
  19. EYLEA [Suspect]
     Active Substance: AFLIBERCEPT
     Indication: RETINAL VEIN OCCLUSION
     Dosage: 5 MG, LEFT EYE, EVERY 4 WEEKS (28 DAYS), FIRST DOSE
     Route: 031
     Dates: start: 20161207
  20. GENTEAL SEVERE [Suspect]
     Active Substance: HYPROMELLOSE 2910 (4000 MPA.S)
     Indication: PRODUCT USED FOR UNKNOWN INDICATION
     Route: 047
  21. MICROZIDE [Concomitant]
     Active Substance: HYDROCHLOROTHIAZIDE
     Indication: PRODUCT USED FOR UNKNOWN INDICATION
     Dosage: 12.5 MG, UNK
     Route: 048

REACTIONS (15)
  - Eye irritation [Unknown]
  - Magnesium deficiency [None]
  - Blood pressure decreased [Unknown]
  - Adverse drug reaction [Unknown]
  - Malaise [Recovering/Resolving]
  - Blindness unilateral [Unknown]
  - Off label use [Not Recovered/Not Resolved]
  - Unevaluable event [Unknown]
  - Ocular discomfort [Unknown]
  - Diabetic eye disease [Unknown]
  - Retinal haemorrhage [Unknown]
  - Visual impairment [Unknown]
  - Laser therapy [Unknown]
  - Drug ineffective [Unknown]
  - Vision blurred [Unknown]

NARRATIVE: CASE EVENT DATE: 20161207
